FAERS Safety Report 14946752 (Version 1)
Quarter: 2018Q2

REPORT INFORMATION
  Report Type: Spontaneous
  Country: US (occurrence: US)
  Receive Date: 20180508
  Receipt Date: 20180508
  Transmission Date: 20180711
  Serious: Yes (Hospitalization)
  Sender: FDA-Public Use
  Company Number: None

PATIENT
  Age: 62 Year
  Sex: Male

DRUGS (3)
  1. CAPECITABINE 500 MG [Suspect]
     Active Substance: CAPECITABINE
     Indication: NEOPLASM MALIGNANT
     Route: 048
     Dates: start: 20160430
  2. GABAPENTIN. [Concomitant]
     Active Substance: GABAPENTIN
  3. TEMODAR [Concomitant]
     Active Substance: TEMOZOLOMIDE

REACTIONS (3)
  - Nausea [None]
  - Vomiting [None]
  - Thrombosis [None]
